FAERS Safety Report 24032005 (Version 1)
Quarter: 2024Q2

REPORT INFORMATION
  Report Type: Spontaneous
  Country: SE (occurrence: SE)
  Receive Date: 20240630
  Receipt Date: 20240630
  Transmission Date: 20240715
  Serious: Yes (Other)
  Sender: FDA-Public Use
  Company Number: SE-009507513-2406SWE009161

PATIENT
  Sex: Female

DRUGS (1)
  1. KEYTRUDA [Suspect]
     Active Substance: PEMBROLIZUMAB
     Indication: Malignant fibrous histiocytoma
     Dosage: UNK
     Dates: end: 20230413

REACTIONS (3)
  - Rheumatoid arthritis [Unknown]
  - Hypothyroidism [Unknown]
  - Vitiligo [Unknown]

NARRATIVE: CASE EVENT DATE: 20230401
